FAERS Safety Report 5816109-1 (Version None)
Quarter: 2008Q3

REPORT INFORMATION
  Report Type: 
  Country: None (occurrence: None)
  Receive Date: 20080717
  Receipt Date: 20080513
  Transmission Date: 20090109
  Serious: Yes (Disabling)
  Sender: FDA-Public Use
  Company Number: PHEH2008US03597

PATIENT
  Age: 40 Year
  Sex: Male
  Weight: 105.7 kg

DRUGS (1)
  1. EXFORGE [Suspect]
     Indication: HYPERTENSION
     Dosage: 5MGAMLO/320MGVAL
     Dates: start: 20070723

REACTIONS (6)
  - BACK PAIN [None]
  - GAIT DISTURBANCE [None]
  - HYPOAESTHESIA [None]
  - MUSCLE SPASMS [None]
  - MUSCULAR WEAKNESS [None]
  - PARAESTHESIA [None]
